FAERS Safety Report 8371005-3 (Version None)
Quarter: 2012Q2

REPORT INFORMATION
  Report Type: 
  Country: None (occurrence: None)
  Receive Date: 20120518
  Receipt Date: 20120508
  Transmission Date: 20120825
  Serious: Yes (Hospitalization, Other)
  Sender: FDA-Public Use
  Company Number: US-ABBOTT-12P-163-0933778-00

PATIENT
  Sex: Male

DRUGS (8)
  1. IRON [Concomitant]
     Indication: MINERAL SUPPLEMENTATION
  2. HUMIRA [Suspect]
     Indication: PSORIASIS
  3. ZOCOR [Concomitant]
     Indication: BLOOD CHOLESTEROL INCREASED
  4. NEURONTIN [Concomitant]
     Indication: ESSENTIAL TREMOR
  5. CLONIDINE [Concomitant]
     Indication: HYPERTENSION
  6. ASPIRIN [Concomitant]
     Indication: CARDIAC DISORDER
  7. HUMIRA [Suspect]
     Route: 058
     Dates: start: 20090101
  8. METOPROLOL TARTRATE [Concomitant]
     Indication: HYPERTENSION

REACTIONS (7)
  - BRONCHITIS [None]
  - PYREXIA [None]
  - PNEUMONIA [None]
  - ANAL ABSCESS [None]
  - RENAL FAILURE [None]
  - INFLUENZA [None]
  - LEUKOCYTOSIS [None]
